FAERS Safety Report 15324898 (Version 1)
Quarter: 2018Q3

REPORT INFORMATION
  Report Type: Spontaneous
  Country: GB (occurrence: GB)
  Receive Date: 20180828
  Receipt Date: 20180828
  Transmission Date: 20181010
  Serious: Yes (Other)
  Sender: FDA-Public Use
  Company Number: GB-LPDUSPRD-20181527

PATIENT
  Age: 32 Year
  Sex: Female
  Weight: 98 kg

DRUGS (3)
  1. FERINJECT [Suspect]
     Active Substance: FERRIC CARBOXYMALTOSE
     Dosage: UNKNOWN
     Route: 042
     Dates: start: 20180710, end: 20180710
  2. VENLAFAXINE [Concomitant]
     Active Substance: VENLAFAXINE HYDROCHLORIDE
     Dosage: UNKNOWN
     Route: 065
  3. GONAPEPTYL [Concomitant]
     Active Substance: TRIPTORELIN ACETATE
     Dosage: UNKNOWN
     Route: 050

REACTIONS (4)
  - Myalgia [Unknown]
  - Feeling abnormal [Unknown]
  - Indifference [Unknown]
  - Fatigue [Unknown]

NARRATIVE: CASE EVENT DATE: 20180710
